FAERS Safety Report 13333519 (Version 3)
Quarter: 2017Q1

REPORT INFORMATION
  Report Type: Spontaneous
  Country: IT (occurrence: IT)
  Receive Date: 20170313
  Receipt Date: 20170331
  Transmission Date: 20170428
  Serious: Yes (Death)
  Sender: FDA-Public Use
  Company Number: IT-ELI_LILLY_AND_COMPANY-IT201703004105

PATIENT
  Age: 53 Year
  Sex: Female

DRUGS (4)
  1. CHOLECALCIFEROL [Concomitant]
     Active Substance: CHOLECALCIFEROL
     Dosage: UNK, UNKNOWN
  2. DROSPIRENONE W/ESTRADIOL HEMIHYDRATE [Concomitant]
     Indication: MENOPAUSAL SYMPTOMS
  3. CIPRALEX [Concomitant]
     Active Substance: ESCITALOPRAM OXALATE
     Indication: INSOMNIA
     Dosage: 10 GTT, EACH EVENING
     Dates: start: 201605
  4. FORSTEO [Suspect]
     Active Substance: TERIPARATIDE
     Indication: OSTEOPOROTIC FRACTURE
     Dosage: 20 UG, QD
     Route: 058
     Dates: start: 20151008, end: 20170205

REACTIONS (1)
  - Completed suicide [Fatal]

NARRATIVE: CASE EVENT DATE: 20170205
